FAERS Safety Report 7646317-9 (Version None)
Quarter: 2011Q3

REPORT INFORMATION
  Report Type: 
  Country: None (occurrence: None)
  Receive Date: 20110725
  Receipt Date: 20110707
  Transmission Date: 20111222
  Serious: Yes (Hospitalization, Other)
  Sender: FDA-Public Use
  Company Number: AUR-APL-2011-04164

PATIENT
  Age: 54 Year
  Sex: Male
  Weight: 129 kg

DRUGS (6)
  1. SERTRALINE HYDROCHLORIDE [Suspect]
     Indication: DEPRESSION
     Dosage: 50 MG (50 MG, 1 IN 1 D),ORAL
     Route: 048
  2. TOPIRAMATE [Suspect]
     Indication: MIGRAINE
     Dosage: ORAL
     Route: 048
  3. ALPRAZOLAM [Concomitant]
  4. IBUPROFEN [Suspect]
     Indication: PAIN
     Dosage: (1600 MG)
  5. OXYCOCET(OXYCOCET) [Concomitant]
  6. ATENOLOL [Concomitant]

REACTIONS (10)
  - NECK PAIN [None]
  - HYPOAESTHESIA [None]
  - SEPSIS [None]
  - CALCULUS URETHRAL [None]
  - NIGHTMARE [None]
  - KIDNEY INFECTION [None]
  - SPINAL CORD DISORDER [None]
  - HEADACHE [None]
  - NEPHROLITHIASIS [None]
  - GASTRIC PERFORATION [None]
